FAERS Safety Report 7215158-9 (Version None)
Quarter: 2011Q1

REPORT INFORMATION
  Report Type: 
  Country: None (occurrence: None)
  Receive Date: 20110107
  Receipt Date: 20101005
  Transmission Date: 20110831
  Serious: No
  Sender: FDA-Public Use
  Company Number: A0882953A

PATIENT
  Age: 46 Year
  Sex: Female

DRUGS (7)
  1. RANITIDINE [Concomitant]
  2. CLORAZEPATE DIPOT [Concomitant]
  3. METOPROLOL [Concomitant]
  4. SERTRALINE HYDROCHLORIDE [Concomitant]
  5. LOVAZA [Suspect]
     Indication: BLOOD CHOLESTEROL INCREASED
     Dosage: 1G FOUR TIMES PER DAY
     Route: 048
     Dates: start: 20100729, end: 20100815
  6. TRICOR [Concomitant]
  7. NEXIUM [Concomitant]

REACTIONS (3)
  - INFLUENZA LIKE ILLNESS [None]
  - NAUSEA [None]
  - GASTRIC DISORDER [None]
